FAERS Safety Report 23069358 (Version 1)
Quarter: 2023Q4

REPORT INFORMATION
  Report Type: Spontaneous
  Country: US (occurrence: US)
  Receive Date: 20231016
  Receipt Date: 20231016
  Transmission Date: 20240110
  Serious: Yes (Other)
  Sender: FDA-Public Use
  Company Number: US-drreddys-SPO/USA/23/0179419

PATIENT
  Age: 22 Year
  Sex: Female

DRUGS (1)
  1. ACCUTANE [Suspect]
     Active Substance: ISOTRETINOIN
     Indication: Product used for unknown indication
     Dates: start: 20230228

REACTIONS (5)
  - Depression [Unknown]
  - Dry eye [Unknown]
  - Vision blurred [Unknown]
  - Drug ineffective [Unknown]
  - Product quality issue [Unknown]
